FAERS Safety Report 7194456-1 (Version None)
Quarter: 2010Q4

REPORT INFORMATION
  Report Type: 
  Country: None (occurrence: None)
  Receive Date: 20101223
  Receipt Date: 20101213
  Transmission Date: 20110411
  Serious: Yes (Life-Threatening, Hospitalization)
  Sender: FDA-Public Use
  Company Number: US-WATSON-2010-16396

PATIENT
  Age: 20 Month
  Sex: Male

DRUGS (2)
  1. FORTAMET [Suspect]
     Indication: PRODUCT USED FOR UNKNOWN INDICATION
     Dosage: 1000 MG, UNKNOWN
     Route: 048
  2. GLIPIZIDE [Suspect]
     Indication: PRODUCT USED FOR UNKNOWN INDICATION
     Dosage: 10 MG, UNKNOWN
     Route: 048

REACTIONS (9)
  - CONVULSION [None]
  - HYPERHIDROSIS [None]
  - HYPOGLYCAEMIA [None]
  - IRRITABILITY [None]
  - LETHARGY [None]
  - NEUROLOGICAL DECOMPENSATION [None]
  - OVERDOSE [None]
  - SLOW RESPONSE TO STIMULI [None]
  - SYNCOPE [None]
